FAERS Safety Report 4980772-8 (Version None)
Quarter: 2006Q2

REPORT INFORMATION
  Report Type: 
  Country: None (occurrence: None)
  Receive Date: 20060424
  Receipt Date: 20060221
  Transmission Date: 20061013
  Serious: Yes (Hospitalization, Other)
  Sender: FDA-Public Use
  Company Number: AU-AVENTIS-200611243EU

PATIENT
  Age: 59 Year
  Sex: Female
  Weight: 78 kg

DRUGS (1)
  1. ENOXAPARIN SODIUM [Suspect]
     Indication: ANTICOAGULANT THERAPY
     Route: 058

REACTIONS (4)
  - ANTI FACTOR X ANTIBODY POSITIVE [None]
  - COAGULATION TIME PROLONGED [None]
  - POST PROCEDURAL HAEMORRHAGE [None]
  - SPINAL HAEMATOMA [None]
